FAERS Safety Report 7525550-0 (Version None)
Quarter: 2011Q2

REPORT INFORMATION
  Report Type: 
  Country: None (occurrence: None)
  Receive Date: 20110606
  Receipt Date: 20110531
  Transmission Date: 20111010
  Serious: Yes (Other)
  Sender: FDA-Public Use
  Company Number: US-ABBOTT-11P-163-0711284-00

PATIENT
  Sex: Female

DRUGS (2)
  1. LUPRON DEPOT [Suspect]
     Indication: ENDOMETRIOSIS
     Dates: start: 20110201
  2. CELEXA [Concomitant]
     Indication: PRODUCT USED FOR UNKNOWN INDICATION

REACTIONS (17)
  - VISION BLURRED [None]
  - DIZZINESS [None]
  - CONFUSIONAL STATE [None]
  - ANXIETY [None]
  - BACK PAIN [None]
  - CHEST DISCOMFORT [None]
  - ANGER [None]
  - HEADACHE [None]
  - HALLUCINATION, VISUAL [None]
  - HYPERSENSITIVITY [None]
  - CHOKING SENSATION [None]
  - URTICARIA [None]
  - HYPOAESTHESIA [None]
  - PARAESTHESIA [None]
  - DEPRESSION [None]
  - ABDOMINAL PAIN [None]
  - MELANOCYTIC NAEVUS [None]
